FAERS Safety Report 6218652-2 (Version None)
Quarter: 2009Q2

REPORT INFORMATION
  Report Type: 
  Country: None (occurrence: None)
  Receive Date: 20090608
  Receipt Date: 20090603
  Transmission Date: 20091009
  Serious: Yes (Death, Hospitalization, Other)
  Sender: FDA-Public Use
  Company Number: AU-NOVOPROD-288013

PATIENT
  Age: 32 Year
  Sex: Male
  Weight: 111 kg

DRUGS (3)
  1. NOVOSEVEN [Suspect]
     Indication: HAEMORRHAGE
     Dosage: 8.4 MG, SINGLE
     Dates: start: 20051019
  2. NOVOSEVEN [Suspect]
     Dosage: 8.4 UNK, SINGLE
     Dates: start: 20051019
  3. VITAMIN K TAB [Concomitant]

REACTIONS (1)
  - CEREBRAL INFARCTION [None]
